FAERS Safety Report 6626289-6 (Version None)
Quarter: 2010Q1

REPORT INFORMATION
  Report Type: 
  Country: None (occurrence: None)
  Receive Date: 20100310
  Receipt Date: 20100304
  Transmission Date: 20100710
  Serious: Yes (Other)
  Sender: FDA-Public Use
  Company Number: FR-ABBOTT-09P-056-0583324-00

PATIENT
  Age: 18 Month
  Sex: Female
  Weight: 10.7 kg

DRUGS (7)
  1. VALPROIC ACID [Suspect]
     Indication: CONVULSION
     Dosage: 1.4 ML/ 8 H
  2. VALPROIC ACID [Suspect]
     Dosage: 2000 MG/ 8 H
     Dates: start: 20081101, end: 20081101
  3. VALPROIC ACID [Suspect]
     Dosage: 500 MG/ 8 H
     Dates: start: 20081101, end: 20081101
  4. ESOMEPRAZOLE MAGNESIUM [Concomitant]
     Indication: DRUG USE FOR UNKNOWN INDICATION
  5. BACLOFEN [Concomitant]
     Indication: DRUG USE FOR UNKNOWN INDICATION
  6. CLONAZEPAM [Concomitant]
     Indication: DRUG USE FOR UNKNOWN INDICATION
  7. AMITRIPTYLINE HCL [Concomitant]
     Indication: DRUG USE FOR UNKNOWN INDICATION

REACTIONS (4)
  - ACCIDENTAL OVERDOSE [None]
  - DRUG ADMINISTRATION ERROR [None]
  - INCORRECT ROUTE OF DRUG ADMINISTRATION [None]
  - SOMNOLENCE [None]
